FAERS Safety Report 14138537 (Version 2)
Quarter: 2018Q1

REPORT INFORMATION
  Report Type: Spontaneous
  Country: US (occurrence: US)
  Receive Date: 20171027
  Receipt Date: 20180313
  Transmission Date: 20180508
  Serious: No
  Sender: FDA-Public Use
  Company Number: US-ROCHE-1966995

PATIENT
  Age: 59 Year
  Sex: Female

DRUGS (1)
  1. ALECENSA [Suspect]
     Active Substance: ALECTINIB HYDROCHLORIDE
     Indication: LUNG NEOPLASM MALIGNANT
     Dosage: 4 CAPSULES ORALLY 2 TIMES A DAY
     Route: 048
     Dates: start: 20170503

REACTIONS (4)
  - Constipation [Unknown]
  - Fatigue [Not Recovered/Not Resolved]
  - Constipation [Not Recovered/Not Resolved]
  - Increased tendency to bruise [Not Recovered/Not Resolved]

NARRATIVE: CASE EVENT DATE: 20170524
